FAERS Safety Report 25649361 (Version 1)
Quarter: 2025Q3

REPORT INFORMATION
  Report Type: Spontaneous
  Country: US (occurrence: None)
  Receive Date: 20250806
  Receipt Date: 20250806
  Transmission Date: 20251021
  Serious: Yes (Hospitalization)
  Sender: FDA-CTU
  Company Number: None

PATIENT
  Age: 88 Year
  Sex: Male
  Weight: 93.4 kg

DRUGS (1)
  1. TOLODODEKIN ALFA [Suspect]
     Active Substance: TOLODODEKIN ALFA
     Dates: end: 20250701

REACTIONS (4)
  - Chest pain [None]
  - Electrocardiogram ST segment depression [None]
  - Bundle branch block left [None]
  - Bundle branch block left [None]

NARRATIVE: CASE EVENT DATE: 20250710
